FAERS Safety Report 13948145 (Version 1)
Quarter: 2017Q3

REPORT INFORMATION
  Report Type: Spontaneous
  Country: US (occurrence: US)
  Receive Date: 20170908
  Receipt Date: 20170908
  Transmission Date: 20171128
  Serious: Yes (Other)
  Sender: FDA-Public Use
  Company Number: PHHY2017US126451

PATIENT

DRUGS (3)
  1. PACLITAXEL. [Suspect]
     Active Substance: PACLITAXEL
     Dosage: 60 MG/M2, (Q21 DAYS X 6 CYCLES)
     Route: 042
     Dates: start: 20140102, end: 20140429
  2. PACLITAXEL. [Suspect]
     Active Substance: PACLITAXEL
     Dosage: 175 MG/M2,(DAY ONE EVERY 21 DAYS X 2 CYCLES)
     Route: 042
     Dates: start: 20140521, end: 20140611
  3. PACLITAXEL. [Suspect]
     Active Substance: PACLITAXEL
     Indication: SEROUS CYSTADENOCARCINOMA OVARY
     Dosage: 135 MG/M2, (OVER 3 HOURS ON DAY 1)
     Route: 042

REACTIONS (1)
  - Serous cystadenocarcinoma ovary [Unknown]
